FAERS Safety Report 7197318-9 (Version None)
Quarter: 2010Q4

REPORT INFORMATION
  Report Type: 
  Country: None (occurrence: None)
  Receive Date: 20101206
  Receipt Date: 20101117
  Transmission Date: 20110411
  Serious: Yes (Hospitalization)
  Sender: FDA-Public Use
  Company Number: BAYER CASE ID: 201015861BYL

PATIENT
  Age: 70 Year
  Sex: Male

DRUGS (5)
  1. ACARBOSE [Suspect]
     Indication: DIABETES MELLITUS
     Dosage: 300 MG ORAL
     Route: 048
     Dates: start: 20010101
  2. GLICLAZIDE (GLICLAZIDE) [Concomitant]
  3. GLYBURIDE [Concomitant]
  4. INSULIN (INSULIN [INSULIN]) [Concomitant]
  5. HYDROCORTISONE (HYDROCORTISONE [HYDROCORTISONE]) [Concomitant]

REACTIONS (10)
  - ADRENAL INSUFFICIENCY [None]
  - AREFLEXIA [None]
  - BRADYCARDIA [None]
  - DEPRESSED LEVEL OF CONSCIOUSNESS [None]
  - HYPOGLYCAEMIA [None]
  - HYPONATRAEMIA [None]
  - HYPOTENSION [None]
  - ISOLATED ADRENOCORTICOTROPIC HORMONE DEFICIENCY [None]
  - NORMOCHROMIC NORMOCYTIC ANAEMIA [None]
  - OESOPHAGEAL CARCINOMA [None]
